FAERS Safety Report 7585201-6 (Version None)
Quarter: 2011Q3

REPORT INFORMATION
  Report Type: 
  Country: None (occurrence: None)
  Receive Date: 20110701
  Receipt Date: 20110620
  Transmission Date: 20111222
  Serious: No
  Sender: FDA-Public Use
  Company Number: US-BIOGENIDEC-2011BI006814

PATIENT
  Age: 47 Year
  Sex: Female

DRUGS (1)
  1. TYSABRI [Suspect]
     Indication: MULTIPLE SCLEROSIS
     Route: 042
     Dates: start: 20061011

REACTIONS (20)
  - HYPOAESTHESIA [None]
  - MULTIPLE SCLEROSIS RELAPSE [None]
  - HEADACHE [None]
  - PNEUMONIA [None]
  - STOMATITIS [None]
  - FATIGUE [None]
  - NEUROPATHY PERIPHERAL [None]
  - FALL [None]
  - PERONEAL NERVE PALSY [None]
  - WEIGHT INCREASED [None]
  - CHILLS [None]
  - ARTHRALGIA [None]
  - PAIN [None]
  - MEMORY IMPAIRMENT [None]
  - DISTURBANCE IN ATTENTION [None]
  - STRESS [None]
  - IMMUNE SYSTEM DISORDER [None]
  - OSTEOARTHRITIS [None]
  - HAND FRACTURE [None]
  - BRONCHITIS [None]
